FAERS Safety Report 4786752-X (Version None)
Quarter: 2005Q4

REPORT INFORMATION
  Report Type: 
  Country: None (occurrence: None)
  Receive Date: 20051003
  Receipt Date: 20051003
  Transmission Date: 20060501
  Serious: No
  Sender: FDA-Public Use
  Company Number: None

PATIENT
  Age: 32 Year
  Sex: Female
  Weight: 84.369 kg

DRUGS (1)
  1. FERRLECIT [Suspect]
     Indication: ANAEMIA
     Dosage: 125MG TODAY IV
     Route: 042
     Dates: start: 20050930, end: 20050930

REACTIONS (3)
  - BACK PAIN [None]
  - DYSPHONIA [None]
  - INFUSION RELATED REACTION [None]
